FAERS Safety Report 8096855-2 (Version None)
Quarter: 2012Q1

REPORT INFORMATION
  Report Type: 
  Country: None (occurrence: None)
  Receive Date: 20120129
  Receipt Date: 20111107
  Transmission Date: 20120608
  Serious: No
  Sender: FDA-Public Use
  Company Number: US-ABBOTT-11P-163-0872151-00

PATIENT
  Sex: Male
  Weight: 63.106 kg

DRUGS (1)
  1. HUMIRA [Suspect]
     Indication: ANKYLOSING SPONDYLITIS
     Dates: start: 20110201

REACTIONS (4)
  - INJECTION SITE REACTION [None]
  - INJECTION SITE ERYTHEMA [None]
  - TREMOR [None]
  - INJECTION SITE PRURITUS [None]
